FAERS Safety Report 5030533-9 (Version None)
Quarter: 2006Q2

REPORT INFORMATION
  Report Type: 
  Country: None (occurrence: None)
  Receive Date: 20060615
  Receipt Date: 20060606
  Transmission Date: 20061013
  Serious: Yes (Hospitalization, Other)
  Sender: FDA-Public Use
  Company Number: 2006072345

PATIENT
  Age: 88 Year
  Sex: Male
  Weight: 89.5 kg

DRUGS (12)
  1. ZYVOX [Suspect]
     Indication: ILL-DEFINED DISORDER
     Dosage: 1200 MG (600 MG, 2 IN 1 D), INTRAVENOUS
     Route: 042
     Dates: start: 20060101, end: 20060601
  2. NYSTATIN  POWDER (NYSTATIN) [Concomitant]
  3. LIPITOR [Concomitant]
  4. LASIX [Concomitant]
  5. K-DUR 10 [Concomitant]
  6. PROTONIX [Concomitant]
  7. TAMSULOSIN HYDROCHLORIDE [Concomitant]
  8. COLACE (DOCUSATE SODIUM) [Concomitant]
  9. ALBUTEROL [Concomitant]
  10. SEROQUEL [Concomitant]
  11. AMIODARONE HCL [Concomitant]
  12. ARANESP [Concomitant]

REACTIONS (2)
  - MYOCARDIAL INFARCTION [None]
  - THROMBOCYTOPENIA [None]
